FAERS Safety Report 7139370-2 (Version None)
Quarter: 2010Q4

REPORT INFORMATION
  Report Type: 
  Country: None (occurrence: None)
  Receive Date: 20101206
  Receipt Date: 20101125
  Transmission Date: 20110411
  Serious: Yes (Other)
  Sender: FDA-Public Use
  Company Number: EC-ALLERGAN-1015566US

PATIENT
  Age: 4 Year
  Sex: Male

DRUGS (1)
  1. FLURINOL SYRUP [Suspect]
     Indication: PRODUCT USED FOR UNKNOWN INDICATION
     Dosage: UNK
     Route: 048

REACTIONS (1)
  - HEPATITIS [None]
